FAERS Safety Report 5674725-4 (Version None)
Quarter: 2008Q1

REPORT INFORMATION
  Report Type: 
  Country: None (occurrence: None)
  Receive Date: 20080320
  Receipt Date: 20080317
  Transmission Date: 20080703
  Serious: Yes (Death, Life-Threatening, Hospitalization, Other)
  Sender: FDA-Public Use
  Company Number: US-BRISTOL-MYERS SQUIBB COMPANY-13464938

PATIENT
  Age: 56 Year
  Sex: Male

DRUGS (36)
  1. CARBOPLATIN [Suspect]
     Indication: NON-SMALL CELL LUNG CANCER
     Route: 042
     Dates: start: 20060406, end: 20060718
  2. PACLITAXEL [Suspect]
     Indication: NON-SMALL CELL LUNG CANCER
     Route: 042
     Dates: start: 20060406, end: 20060718
  3. SORAFENIB [Suspect]
     Indication: NON-SMALL CELL LUNG CANCER
     Route: 048
     Dates: start: 20060524, end: 20060722
  4. ESTER-C [Concomitant]
     Indication: MEDICAL DIET
     Dates: start: 20060101, end: 20060715
  5. PAXIL CR [Concomitant]
     Indication: DEPRESSION
     Dates: start: 20060320
  6. MEGACE [Concomitant]
     Indication: WEIGHT DECREASED
     Route: 048
     Dates: start: 20060406, end: 20060509
  7. MARINOL [Concomitant]
     Indication: WEIGHT DECREASED
     Route: 048
     Dates: start: 20060411
  8. MARINOL [Concomitant]
     Indication: NAUSEA
     Route: 048
     Dates: start: 20060411
  9. MARINOL [Concomitant]
     Indication: APPETITE DISORDER
     Route: 048
     Dates: start: 20060411
  10. COMPAZINE [Concomitant]
     Indication: NAUSEA
     Route: 048
     Dates: start: 20060406
  11. CORAL CALCIUM [Concomitant]
     Indication: MEDICAL DIET
     Route: 048
     Dates: start: 20060418, end: 20060715
  12. GINSENG [Concomitant]
     Indication: MEDICAL DIET
     Route: 048
     Dates: start: 20060301, end: 20060715
  13. BACTRIM DS [Concomitant]
     Indication: ANTIBIOTIC PROPHYLAXIS
     Route: 048
     Dates: start: 20060627
  14. ATIVAN [Concomitant]
     Indication: ANXIETY
     Dates: start: 20060713, end: 20060713
  15. LOMOTIL [Concomitant]
     Indication: DIARRHOEA
     Dates: start: 20060711
  16. AUGMENTIN '125' [Concomitant]
     Indication: ANTIBIOTIC PROPHYLAXIS
     Dosage: 1 DOSAGE FORM = 1000/62.5MG
     Route: 048
     Dates: start: 20060627
  17. TYLENOL (CAPLET) [Concomitant]
     Indication: HEADACHE
     Dosage: 750MG ON 16JUN06, 360MG ON 19JUL06
     Route: 048
     Dates: start: 20060502
  18. FISH OIL [Concomitant]
     Indication: MEDICAL DIET
     Dates: start: 20060101
  19. MULTI-VITAMIN [Concomitant]
     Indication: MEDICAL DIET
     Dates: start: 19960101, end: 20060715
  20. XANAX [Concomitant]
     Indication: ANXIETY
     Dates: start: 20060627
  21. ATROPINE [Concomitant]
     Indication: DIARRHOEA
     Dates: start: 20060713, end: 20060713
  22. DECADRON [Concomitant]
     Indication: FATIGUE
     Dosage: 20MG TAKEN ON 13JUL06
     Dates: start: 20060714, end: 20060714
  23. VITAMIN B COMPLEX CAP [Concomitant]
     Indication: NEUROPATHY PERIPHERAL
     Dates: start: 20060627
  24. BENADRYL [Concomitant]
     Indication: PROPHYLAXIS
     Dates: start: 20060502, end: 20060719
  25. LASIX [Concomitant]
     Indication: PROPHYLAXIS
     Dates: start: 20060616, end: 20060719
  26. PLATELETS [Concomitant]
     Indication: THROMBOCYTOPENIA
     Dates: start: 20060502, end: 20060502
  27. ARANESP [Concomitant]
     Indication: ANAEMIA
     Route: 058
     Dates: start: 20060718, end: 20060718
  28. RED BLOOD CELLS [Concomitant]
     Indication: ANAEMIA
     Route: 042
     Dates: start: 20060716, end: 20060719
  29. CIPRO [Concomitant]
     Route: 042
     Dates: start: 20060723
  30. FLAGYL [Concomitant]
     Route: 048
     Dates: start: 20060723
  31. FAT EMULSION [Concomitant]
     Route: 042
  32. MAGIC MOUTHWASH [Concomitant]
  33. SILVADENE [Concomitant]
     Route: 061
  34. HUMULIN R [Concomitant]
  35. MORPHINE SULFATE [Concomitant]
     Indication: PAIN
  36. HYDROMORPHONE HCL [Concomitant]
     Route: 042

REACTIONS (9)
  - CARDIAC FAILURE CONGESTIVE [None]
  - DEHYDRATION [None]
  - MALIGNANT NEOPLASM PROGRESSION [None]
  - PANCYTOPENIA [None]
  - RENAL FAILURE [None]
  - RESPIRATORY FAILURE [None]
  - SEPSIS [None]
  - SINUS TACHYCARDIA [None]
  - THROMBOCYTOPENIA [None]
